FAERS Safety Report 25859276 (Version 2)
Quarter: 2025Q4

REPORT INFORMATION
  Report Type: Spontaneous
  Country: US (occurrence: US)
  Receive Date: 20250929
  Receipt Date: 20251027
  Transmission Date: 20260118
  Serious: Yes (Other)
  Sender: VERTEX
  Company Number: US-VERTEX PHARMACEUTICALS-2025-014433

PATIENT
  Sex: Male

DRUGS (1)
  1. ALYFTREK [Suspect]
     Active Substance: DEUTIVACAFTOR\TEZACAFTOR\VANZACAFTOR
     Indication: Cystic fibrosis
     Dosage: 02 TABLETS (10MG VANZACAFTOR/50 MG TEZACAFTOR/125 MG DEUTIVACAFTOR), DAILY
     Route: 048
     Dates: start: 20250825

REACTIONS (9)
  - Abdominal pain upper [Unknown]
  - Diarrhoea [Unknown]
  - Steatorrhoea [Unknown]
  - Lethargy [Unknown]
  - Fatigue [Unknown]
  - Headache [Unknown]
  - Abdominal discomfort [Unknown]
  - Nausea [Unknown]
  - Paranasal sinus hypersecretion [Unknown]

NARRATIVE: CASE EVENT DATE: 20250101
